FAERS Safety Report 9201117 (Version 2)
Quarter: 2013Q2

REPORT INFORMATION
  Report Type: Spontaneous
  Country: US (occurrence: US)
  Receive Date: 20130401
  Receipt Date: 20130412
  Transmission Date: 20140414
  Serious: No
  Sender: FDA-Public Use
  Company Number: US-PFIZER INC-2013103149

PATIENT
  Age: 50 Year
  Sex: Female
  Weight: 58.05 kg

DRUGS (11)
  1. CHANTIX [Suspect]
     Indication: SMOKING CESSATION THERAPY
     Dosage: 0.5 MG, 1X/DAY
     Route: 048
     Dates: start: 20121019, end: 2012
  2. CHANTIX [Suspect]
     Dosage: 1 MG, 2X/DAY
     Route: 048
     Dates: start: 2012, end: 20121126
  3. TRAZODONE [Concomitant]
     Indication: DEPRESSION
     Dosage: 150 MG, 1X/DAY
  4. ATIVAN [Concomitant]
     Indication: ANXIETY
     Dosage: 5 MG, AS NEEDED
  5. LAMICTAL [Concomitant]
     Indication: MOOD SWINGS
     Dosage: 200 MG, 1X/DAY
  6. ADVAIR DISKUS [Concomitant]
     Indication: ASTHMA
     Dosage: UNK
  7. FLONASE [Concomitant]
     Indication: ASTHMA
     Dosage: UNK
  8. FLONASE [Concomitant]
     Indication: SEASONAL ALLERGY
  9. FLEXERIL [Concomitant]
     Indication: BRONCHOSPASM
     Dosage: 10 MG, 2X/DAY
  10. FLEXERIL [Concomitant]
     Indication: BRONCHITIS CHRONIC
  11. FIORINAL [Concomitant]
     Indication: MIGRAINE
     Dosage: ACETYLSALICYLIC ACID 325 MG/ BUTALBITAL 50 MG/ CAFFEINE 40MG, AS NEEDED

REACTIONS (2)
  - Weight decreased [Unknown]
  - Drug ineffective [Unknown]
